FAERS Safety Report 12821963 (Version 3)
Quarter: 2016Q4

REPORT INFORMATION
  Report Type: Report from Study
  Country: US (occurrence: US)
  Receive Date: 20161006
  Receipt Date: 20161108
  Transmission Date: 20170207
  Serious: Yes (Hospitalization)
  Sender: FDA-Public Use
  Company Number: US-ACTELION-A-US2015-126663

PATIENT
  Age: 50 Year
  Sex: Female

DRUGS (4)
  1. ADCIRCA [Concomitant]
     Active Substance: TADALAFIL
  2. OPSUMIT [Suspect]
     Active Substance: MACITENTAN
     Indication: PULMONARY ARTERIAL HYPERTENSION
     Dosage: 10 MG, QD
     Route: 048
     Dates: start: 20150424
  3. WARFARIN [Concomitant]
     Active Substance: WARFARIN
  4. VELETRI [Suspect]
     Active Substance: EPOPROSTENOL
     Indication: PULMONARY ARTERIAL HYPERTENSION
     Dosage: 25.4 NG/KG, PER MIN
     Route: 042
     Dates: start: 20150505

REACTIONS (13)
  - Cardiac failure congestive [Unknown]
  - Diarrhoea [Unknown]
  - Abdominal discomfort [Unknown]
  - Dizziness postural [Unknown]
  - Pneumonia [Recovered/Resolved]
  - Fluid retention [Unknown]
  - Staphylococcal infection [Recovered/Resolved]
  - Fatigue [Unknown]
  - Device related infection [Unknown]
  - Catheter site infection [Recovered/Resolved]
  - Dyspnoea [Unknown]
  - Device related sepsis [Recovered/Resolved]
  - Pain in jaw [Unknown]

NARRATIVE: CASE EVENT DATE: 20160215
